FAERS Safety Report 12452912 (Version 1)
Quarter: 2016Q2

REPORT INFORMATION
  Report Type: Spontaneous
  Country: US (occurrence: US)
  Receive Date: 20160609
  Receipt Date: 20160609
  Transmission Date: 20160815
  Serious: No
  Sender: FDA-Public Use
  Company Number: US-PFIZER INC-2016177569

PATIENT
  Age: 56 Year
  Sex: Male

DRUGS (5)
  1. NEURONTIN [Suspect]
     Active Substance: GABAPENTIN
     Indication: NEUROPATHY PERIPHERAL
  2. NEURONTIN [Suspect]
     Active Substance: GABAPENTIN
     Indication: TEMPORAL LOBE EPILEPSY
     Dosage: 800 MG, 2X/DAY
     Dates: start: 2011
  3. IBUPROFEN. [Concomitant]
     Active Substance: IBUPROFEN
     Dosage: 600 MG, 2X/DAY
     Dates: start: 2012
  4. ALBUTEROL. [Concomitant]
     Active Substance: ALBUTEROL
     Dosage: 90 UG, 1-2 PUFFS, 4X/DAY
     Dates: start: 1995
  5. CICLESONIDE [Concomitant]
     Active Substance: CICLESONIDE
     Dosage: 160 UG, 2 PUFFS, 2X/DAY
     Dates: start: 2014

REACTIONS (4)
  - Drug ineffective [Unknown]
  - Rib fracture [Unknown]
  - Wrong technique in product usage process [Unknown]
  - Drug effect incomplete [Unknown]
